FAERS Safety Report 24032922 (Version 1)
Quarter: 2024Q3

REPORT INFORMATION
  Report Type: Spontaneous
  Country: US (occurrence: US)
  Receive Date: 20240701
  Receipt Date: 20240701
  Transmission Date: 20241016
  Serious: Yes (Hospitalization, Other)
  Sender: APOTEX
  Company Number: US-APOTEX-2024AP007624

PATIENT
  Age: 35 Year
  Sex: Male

DRUGS (1)
  1. ARIPIPRAZOLE [Suspect]
     Active Substance: ARIPIPRAZOLE
     Indication: Psychiatric symptom
     Dosage: UNK
     Route: 065

REACTIONS (11)
  - Pancreatitis acute [Unknown]
  - Distributive shock [Unknown]
  - Renal tubular necrosis [Unknown]
  - Hypertriglyceridaemia [Unknown]
  - Slow response to stimuli [Not Recovered/Not Resolved]
  - Aphasia [Not Recovered/Not Resolved]
  - Brain injury [Unknown]
  - Cognitive disorder [Not Recovered/Not Resolved]
  - Diabetes mellitus [Unknown]
  - Diabetic ketoacidosis [Unknown]
  - Cardio-respiratory arrest [Unknown]
